FAERS Safety Report 26184610 (Version 1)
Quarter: 2025Q4

REPORT INFORMATION
  Report Type: Spontaneous
  Country: US (occurrence: US)
  Receive Date: 20251222
  Receipt Date: 20251222
  Transmission Date: 20260117
  Serious: Yes (Other)
  Sender: CSL BEHRING
  Company Number: US-BEH-2025228466

PATIENT
  Age: 19 Year
  Sex: Female
  Weight: 134 kg

DRUGS (1)
  1. PRIVIGEN [Suspect]
     Active Substance: HUMAN IMMUNOGLOBULIN G
     Indication: Product used for unknown indication
     Route: 065

REACTIONS (3)
  - Leukaemia [Unknown]
  - Therapy interrupted [Unknown]
  - Adverse drug reaction [Unknown]
